FAERS Safety Report 12536924 (Version 1)
Quarter: 2016Q3

REPORT INFORMATION
  Report Type: Spontaneous
  Country: CN (occurrence: CN)
  Receive Date: 20160707
  Receipt Date: 20160707
  Transmission Date: 20161109
  Serious: Yes (Life-Threatening, Hospitalization, Other)
  Sender: FDA-Public Use
  Company Number: CN-JNJFOC-20160621149

PATIENT

DRUGS (2)
  1. RISPERIDONE. [Suspect]
     Active Substance: RISPERIDONE
     Indication: SCHIZOPHRENIA
     Dosage: DOSE REDUCED IN WEEK 9
     Route: 048
  2. RISPERIDONE. [Suspect]
     Active Substance: RISPERIDONE
     Indication: SCHIZOPHRENIA
     Dosage: DOSE: 2-6 MG PER DAY FOR 8 WEEKS; TWO DOSES AFTER MEALS.
     Route: 048

REACTIONS (24)
  - Hepatic function abnormal [Unknown]
  - Weight increased [Unknown]
  - Menstrual disorder [Unknown]
  - Suicide attempt [Unknown]
  - Leukopenia [Unknown]
  - Epilepsy [Unknown]
  - Rash [Unknown]
  - Alanine aminotransferase increased [Unknown]
  - Asthenia [Unknown]
  - Treatment noncompliance [Unknown]
  - Palpitations [Unknown]
  - Blood pressure increased [Unknown]
  - Blood pressure decreased [Unknown]
  - Nausea [Unknown]
  - Vomiting [Unknown]
  - Constipation [Unknown]
  - Tachycardia [Unknown]
  - Bradycardia [Unknown]
  - Electrocardiogram QT prolonged [Unknown]
  - Hyperprolactinaemia [Unknown]
  - Electrocardiogram abnormal [Unknown]
  - Aspartate aminotransferase increased [Unknown]
  - Extrapyramidal disorder [Unknown]
  - Galactorrhoea [Unknown]
